FAERS Safety Report 12651666 (Version 1)
Quarter: 2016Q3

REPORT INFORMATION
  Report Type: Spontaneous
  Country: BR (occurrence: BR)
  Receive Date: 20160815
  Receipt Date: 20160815
  Transmission Date: 20161109
  Serious: Yes (Hospitalization, Other)
  Sender: FDA-Public Use
  Company Number: BR-PFIZER INC-2016377555

PATIENT
  Age: 72 Year
  Sex: Male
  Weight: 60 kg

DRUGS (9)
  1. XALATAN [Suspect]
     Active Substance: LATANOPROST
     Indication: GLAUCOMA
     Dosage: 1 DROP EACH EYE PER DAY
     Route: 047
  2. NIMOVAS [Concomitant]
     Indication: CEREBROVASCULAR ACCIDENT PROPHYLAXIS
     Dosage: 2 TABLETS PER DAY
     Route: 048
     Dates: start: 201605
  3. LOSARTAN POTASSIUM. [Concomitant]
     Active Substance: LOSARTAN POTASSIUM
     Indication: HYPERTENSION
     Dosage: HALF TABLET PER DAY
     Route: 048
     Dates: start: 201602
  4. GLAUB [Concomitant]
     Indication: GLAUCOMA
     Dosage: 1 DROP, 3X/DAY
     Route: 047
  5. OMEPRAZOL [Concomitant]
     Active Substance: OMEPRAZOLE
     Indication: GASTRIC DISORDER
     Dosage: 1 TABLET, DAILY
     Route: 048
     Dates: start: 201602
  6. XALATAN [Suspect]
     Active Substance: LATANOPROST
     Dosage: 1 DROP EACH EYE PER DAY
     Route: 047
  7. AZORGA [Concomitant]
     Active Substance: BRINZOLAMIDE\TIMOLOL MALEATE
     Indication: GLAUCOMA
     Dosage: 1 DROP EACH EYE 2X/DAY
     Route: 047
  8. AAS [Concomitant]
     Active Substance: ASPIRIN
     Indication: ANGIOPATHY
     Dosage: 1 TABLET DAILY
     Route: 048
     Dates: start: 20150406
  9. SIMVASTATIN. [Concomitant]
     Active Substance: SIMVASTATIN
     Indication: CARDIOVASCULAR DISORDER
     Dosage: 1 TABLET PER DAY
     Route: 048
     Dates: start: 201602

REACTIONS (2)
  - Diabetes mellitus [Not Recovered/Not Resolved]
  - Ischaemic stroke [Unknown]

NARRATIVE: CASE EVENT DATE: 20150401
